FAERS Safety Report 23652387 (Version 1)
Quarter: 2024Q1

REPORT INFORMATION
  Report Type: Spontaneous
  Country: GB (occurrence: GB)
  Receive Date: 20240320
  Receipt Date: 20240320
  Transmission Date: 20240410
  Serious: Yes (Disabling, Other)
  Sender: FDA-Public Use
  Company Number: None

PATIENT
  Age: 10 Year
  Sex: Female

DRUGS (3)
  1. HYDROCORTISONE [Suspect]
     Active Substance: HYDROCORTISONE
     Route: 065
  2. BETAMETHASONE VALERATE\FUSIDIC ACID [Suspect]
     Active Substance: BETAMETHASONE VALERATE\FUSIDIC ACID
     Route: 065
  3. BETNOVATE [Suspect]
     Active Substance: BETAMETHASONE
     Route: 065

REACTIONS (10)
  - Topical steroid withdrawal reaction [Not Recovered/Not Resolved]
  - Alopecia [Unknown]
  - Erythema [Unknown]
  - Skin exfoliation [Unknown]
  - Insomnia [Unknown]
  - Temperature regulation disorder [Unknown]
  - Depression [Unknown]
  - Pruritus [Unknown]
  - Chills [Unknown]
  - Anxiety [Unknown]

NARRATIVE: CASE EVENT DATE: 20200301
